FAERS Safety Report 20869059 (Version 1)
Quarter: 2022Q2

REPORT INFORMATION
  Report Type: Report from Study
  Country: AT (occurrence: AT)
  Receive Date: 20220524
  Receipt Date: 20220524
  Transmission Date: 20220721
  Serious: Yes (Death)
  Sender: FDA-Public Use
  Company Number: AT-ROCHE-3077212

PATIENT
  Age: 60 Year
  Sex: Male
  Weight: 80 kg

DRUGS (19)
  1. CARBOPLATIN [Suspect]
     Active Substance: CARBOPLATIN
     Indication: Small cell lung cancer extensive stage
     Dosage: 717 MG
     Route: 065
     Dates: start: 20211116
  2. ATEZOLIZUMAB [Suspect]
     Active Substance: ATEZOLIZUMAB
     Indication: Small cell lung cancer extensive stage
     Dosage: 1200 MG
     Route: 041
     Dates: start: 20211116
  3. ETOPOSIDE [Suspect]
     Active Substance: ETOPOSIDE
     Indication: Small cell lung cancer extensive stage
     Dosage: 207 MG
     Route: 042
     Dates: start: 20211116
  4. DEXAMETHASONE [Concomitant]
     Active Substance: DEXAMETHASONE
     Indication: Prophylaxis
     Dosage: UNK
     Dates: start: 20211116, end: 20220304
  5. FENTANYL [Concomitant]
     Active Substance: FENTANYL
     Dosage: UNK, EVERY 3 WEEKS
     Dates: start: 20211207
  6. SODIUM PICOSULFATE [Concomitant]
     Active Substance: SODIUM PICOSULFATE
     Indication: Prophylaxis
     Dosage: UNK, 2X/DAY
     Dates: start: 20211207
  7. LYRICA [Concomitant]
     Active Substance: PREGABALIN
     Dosage: UNK, 1X/DAY
     Dates: start: 20211118
  8. MIRTAZAPINE [Concomitant]
     Active Substance: MIRTAZAPINE
     Dosage: UNK, 1X/DAY
     Dates: start: 20211118
  9. POLYETHYLENE GLYCOL 3350\POTASSIUM CHLORIDE\SODIUM BICARBONATE\SODIUM [Concomitant]
     Active Substance: POLYETHYLENE GLYCOL 3350\POTASSIUM CHLORIDE\SODIUM BICARBONATE\SODIUM CHLORIDE
     Indication: Prophylaxis
     Dosage: UNK
     Dates: start: 20220304
  10. MORPHINE [Concomitant]
     Active Substance: MORPHINE
     Dosage: UNK
     Dates: start: 20211207
  11. NOVALGIN (METAMIZOLE SODIUM) [Concomitant]
     Active Substance: METAMIZOLE SODIUM
     Dosage: UNK, 1X/DAY
  12. ONDANSETRON HYDROCHLORIDE [Concomitant]
     Active Substance: ONDANSETRON HYDROCHLORIDE
     Dosage: 8 MG
     Dates: start: 20220211, end: 20220213
  13. ONDANSETRON HYDROCHLORIDE [Concomitant]
     Active Substance: ONDANSETRON HYDROCHLORIDE
     Dosage: 8 MG
     Dates: start: 20211228
  14. ONDANSETRON HYDROCHLORIDE [Concomitant]
     Active Substance: ONDANSETRON HYDROCHLORIDE
     Dosage: UNK
     Dates: start: 20211116, end: 20220304
  15. PANTOPRAZOLE SODIUM [Concomitant]
     Active Substance: PANTOPRAZOLE SODIUM
     Indication: Prophylaxis
     Dosage: UNK, 1X/DAY
  16. PASSEDAN [Concomitant]
     Indication: Prophylaxis
     Dosage: UNK
  17. PEGFILGRASTIM [Concomitant]
     Active Substance: PEGFILGRASTIM
     Indication: Prophylaxis
     Dosage: UNK
     Dates: start: 20211207
  18. TRAZODONE HYDROCHLORIDE [Concomitant]
     Active Substance: TRAZODONE HYDROCHLORIDE
     Dosage: UNK, 1X/DAY
     Dates: start: 20211118
  19. ALOXI [Concomitant]
     Active Substance: PALONOSETRON HYDROCHLORIDE
     Dosage: UNK

REACTIONS (2)
  - Death [Fatal]
  - Nausea [Recovering/Resolving]

NARRATIVE: CASE EVENT DATE: 20220304
